FAERS Safety Report 18297541 (Version 1)
Quarter: 2020Q3

REPORT INFORMATION
  Report Type: Spontaneous
  Country: US (occurrence: US)
  Receive Date: 20200922
  Receipt Date: 20200922
  Transmission Date: 20201103
  Serious: No
  Sender: FDA-Public Use
  Company Number: US-AMARIN PHARMA, INC.-2019AMR000419

PATIENT
  Age: 61 Year
  Sex: Male
  Weight: 123.49 kg

DRUGS (4)
  1. NOVOLOG [Concomitant]
     Active Substance: INSULIN ASPART
     Indication: DIABETES MELLITUS
  2. VASCEPA [Suspect]
     Active Substance: ICOSAPENT ETHYL
     Indication: BLOOD CHOLESTEROL ABNORMAL
     Route: 048
     Dates: start: 201908
  3. TOUJEO [Concomitant]
     Active Substance: INSULIN GLARGINE
     Indication: DIABETES MELLITUS
  4. METFORMIN [Concomitant]
     Active Substance: METFORMIN HYDROCHLORIDE
     Indication: DIABETES MELLITUS

REACTIONS (3)
  - Skin odour abnormal [Unknown]
  - Product odour abnormal [Unknown]
  - Diarrhoea [Unknown]

NARRATIVE: CASE EVENT DATE: 20191001
